FAERS Safety Report 22593064 (Version 1)
Quarter: 2023Q2

REPORT INFORMATION
  Report Type: Report from Study
  Country: US (occurrence: US)
  Receive Date: 20230613
  Receipt Date: 20230613
  Transmission Date: 20230722
  Serious: Yes (Hospitalization, Other)
  Sender: FDA-Public Use
  Company Number: US-ABBVIE-4315403

PATIENT
  Age: 70 Year
  Sex: Male
  Weight: 84.821 kg

DRUGS (1)
  1. IMBRUVICA [Suspect]
     Active Substance: IBRUTINIB
     Indication: Chronic lymphocytic leukaemia
     Route: 048
     Dates: start: 20200201

REACTIONS (3)
  - Meniscus removal [Unknown]
  - Staphylococcal infection [Not Recovered/Not Resolved]
  - Aspiration joint [Unknown]

NARRATIVE: CASE EVENT DATE: 20200220
